FAERS Safety Report 7674191-3 (Version None)
Quarter: 2011Q3

REPORT INFORMATION
  Report Type: 
  Country: None (occurrence: None)
  Receive Date: 20110810
  Receipt Date: 20110801
  Transmission Date: 20111222
  Serious: Yes (Hospitalization, Other)
  Sender: FDA-Public Use
  Company Number: US-BAYER-2011-019498

PATIENT
  Age: 25 Year
  Sex: Female
  Weight: 75.737 kg

DRUGS (5)
  1. YAZ [Suspect]
     Indication: ACNE
     Dosage: UNK
     Dates: start: 20081001, end: 20090201
  2. YAZ [Suspect]
     Indication: ENDOMETRIOSIS
  3. IBUPROFEN [Concomitant]
     Dosage: UNK
     Route: 048
     Dates: start: 19900101
  4. YAZ [Suspect]
     Indication: CONTRACEPTION
  5. ZYRTEC [Concomitant]
     Indication: SEASONAL ALLERGY
     Dosage: DAILY DOSE 10 MG
     Route: 048

REACTIONS (4)
  - PAIN [None]
  - PULMONARY EMBOLISM [None]
  - EMOTIONAL DISTRESS [None]
  - ANXIETY [None]
